FAERS Safety Report 11102521 (Version 1)
Quarter: 2015Q2

REPORT INFORMATION
  Report Type: Spontaneous
  Country: US (occurrence: None)
  Receive Date: 20150508
  Receipt Date: 20150508
  Transmission Date: 20150821
  Serious: Yes (Other)
  Sender: FDA-Public Use
  Company Number: None

PATIENT
  Age: 41 Year
  Sex: Female
  Weight: 81 kg

DRUGS (12)
  1. MEPERIDINE [Concomitant]
     Active Substance: MEPERIDINE
  2. MICAFUNGIN [Concomitant]
     Active Substance: MICAFUNGIN
  3. FAMOTIDINE. [Concomitant]
     Active Substance: FAMOTIDINE
  4. ENOXAPARIN [Concomitant]
     Active Substance: ENOXAPARIN
  5. ACETAMINOPHEN. [Concomitant]
     Active Substance: ACETAMINOPHEN
  6. ONDANSETRON [Concomitant]
     Active Substance: ONDANSETRON
  7. TIGECYCLINE [Suspect]
     Active Substance: TIGECYCLINE
     Indication: DEVICE RELATED SEPSIS
     Route: 042
     Dates: start: 20150417, end: 20150420
  8. ZOLPIDEM [Concomitant]
     Active Substance: ZOLPIDEM\ZOLPIDEM TARTRATE
  9. NS [Concomitant]
     Active Substance: SODIUM CHLORIDE
  10. DIPHENHYDRAMINE [Concomitant]
     Active Substance: DIPHENHYDRAMINE
  11. LORAZEPAM. [Concomitant]
     Active Substance: LORAZEPAM
  12. HYDROMORPHONE [Concomitant]
     Active Substance: HYDROMORPHONE

REACTIONS (1)
  - Pancreatitis [None]

NARRATIVE: CASE EVENT DATE: 20150420
